FAERS Safety Report 11527490 (Version 1)
Quarter: 2015Q3

REPORT INFORMATION
  Report Type: Spontaneous
  Country: US (occurrence: US)
  Receive Date: 20150903
  Receipt Date: 20150903
  Transmission Date: 20151125
  Serious: No
  Sender: FDA-Public Use
  Company Number: US-ELI_LILLY_AND_COMPANY-US200906006071

PATIENT
  Age: 0 Year
  Sex: Male
  Weight: 2.72 kg

DRUGS (3)
  1. HUMALOG [Suspect]
     Active Substance: INSULIN LISPRO
     Route: 064
     Dates: start: 2008, end: 20090116
  2. HUMALOG [Suspect]
     Active Substance: INSULIN LISPRO
     Route: 063
     Dates: start: 20090123, end: 20090323
  3. PRENATAL VITAMINS                  /01549301/ [Concomitant]
     Active Substance: VITAMINS
     Route: 064
     Dates: end: 20090116

REACTIONS (4)
  - Premature baby [Recovered/Resolved]
  - Foetal exposure during pregnancy [Recovered/Resolved]
  - Haemangioma of liver [Recovering/Resolving]
  - Exposure during breast feeding [Recovered/Resolved]

NARRATIVE: CASE EVENT DATE: 2008
